FAERS Safety Report 11227441 (Version 3)
Quarter: 2015Q3

REPORT INFORMATION
  Report Type: Spontaneous
  Country: JP (occurrence: JP)
  Receive Date: 20150630
  Receipt Date: 20150710
  Transmission Date: 20151125
  Serious: Yes (Death, Other)
  Sender: FDA-Public Use
  Company Number: JP-ROCHE-1600259

PATIENT
  Age: 38 Year
  Sex: Male

DRUGS (1)
  1. CELLCEPT [Suspect]
     Active Substance: MYCOPHENOLATE MOFETIL\MYCOPHENOLATE MOFETIL HYDROCHLORIDE
     Indication: GLOMERULONEPHRITIS RAPIDLY PROGRESSIVE
     Dosage: DOSAGE IS UNCERTAIN.
     Route: 048

REACTIONS (5)
  - Meningitis cryptococcal [Fatal]
  - Thrombotic microangiopathy [Unknown]
  - Renal failure [Unknown]
  - Off label use [Unknown]
  - Pyrexia [Unknown]
